FAERS Safety Report 14632824 (Version 1)
Quarter: 2018Q1

REPORT INFORMATION
  Report Type: Report from Study
  Country: VN (occurrence: VN)
  Receive Date: 20180313
  Receipt Date: 20180313
  Transmission Date: 20180509
  Serious: Yes (Other)
  Sender: FDA-Public Use
  Company Number: PHHO2018VN002477

PATIENT
  Age: 17 Year
  Sex: Male
  Weight: 60 kg

DRUGS (6)
  1. NORMAL SALINE [Concomitant]
     Active Substance: SODIUM CHLORIDE
     Indication: NUTRITIONAL SUPPLEMENTATION
     Dosage: 500 ML, QD
     Route: 042
     Dates: start: 20180205, end: 20180205
  2. PARACETAMOL [Concomitant]
     Active Substance: ACETAMINOPHEN
     Indication: PYREXIA
     Dosage: 500 MG, QD
     Route: 048
     Dates: start: 20180205, end: 20180205
  3. KAF156 [Suspect]
     Active Substance: GANAPLACIDE
     Indication: PLASMODIUM FALCIPARUM INFECTION
     Dosage: 400 MG, QD
     Route: 048
     Dates: start: 20180206
  4. LUMEFANTRINE [Suspect]
     Active Substance: LUMEFANTRINE
     Indication: PLASMODIUM FALCIPARUM INFECTION
     Dosage: 960 MG, QD
     Route: 048
     Dates: start: 20180206
  5. GLUCOSE [Concomitant]
     Active Substance: DEXTROSE
     Indication: NUTRITIONAL SUPPLEMENTATION
     Dosage: 500 ML, QD
     Route: 042
     Dates: start: 20180206, end: 20180206
  6. PARACETAMOL [Concomitant]
     Active Substance: ACETAMINOPHEN
     Dosage: 500 MG, BID
     Route: 048
     Dates: start: 20180206, end: 20180206

REACTIONS (1)
  - Electrocardiogram QT prolonged [Recovered/Resolved]

NARRATIVE: CASE EVENT DATE: 20180208
